FAERS Safety Report 6188788-3 (Version None)
Quarter: 2009Q2

REPORT INFORMATION
  Report Type: 
  Country: None (occurrence: None)
  Receive Date: 20090511
  Receipt Date: 20090511
  Transmission Date: 20091009
  Serious: Yes (Hospitalization, Other)
  Sender: FDA-Public Use
  Company Number: None

PATIENT
  Age: 29 Year
  Sex: Female
  Weight: 76.6579 kg

DRUGS (1)
  1. TOPIRAMATE [Suspect]
     Indication: CONVULSION
     Dosage: 50 MG  2 TWICE DAILY PO
     Route: 048
     Dates: start: 20090401, end: 20090506

REACTIONS (7)
  - COGNITIVE DISORDER [None]
  - FATIGUE [None]
  - HEADACHE [None]
  - IMPAIRED DRIVING ABILITY [None]
  - PETIT MAL EPILEPSY [None]
  - POSTICTAL STATE [None]
  - PRODUCT QUALITY ISSUE [None]
